FAERS Safety Report 7289987-X (Version None)
Quarter: 2011Q1

REPORT INFORMATION
  Report Type: 
  Country: None (occurrence: None)
  Receive Date: 20110214
  Receipt Date: 20110125
  Transmission Date: 20110831
  Serious: Yes (Death, Other)
  Sender: FDA-Public Use
  Company Number: US-TYCO HEALTHCARE/MALLINCKRODT-T201100159

PATIENT
  Age: 21 Year
  Sex: Male

DRUGS (3)
  1. OXYCODONE [Suspect]
     Dosage: UNK
     Route: 048
  2. ALPRAZOLAM [Suspect]
     Route: 048
  3. CARISOPRODOL [Suspect]
     Route: 048

REACTIONS (6)
  - MULTIPLE DRUG OVERDOSE [None]
  - COMPLETED SUICIDE [None]
  - ASPIRATION [None]
  - CARDIO-RESPIRATORY ARREST [None]
  - LETHARGY [None]
  - MIOSIS [None]
